FAERS Safety Report 8100627-X (Version None)
Quarter: 2012Q1

REPORT INFORMATION
  Report Type: 
  Country: None (occurrence: None)
  Receive Date: 20120131
  Receipt Date: 20120130
  Transmission Date: 20120608
  Serious: Yes (Hospitalization, Other)
  Sender: FDA-Public Use
  Company Number: JP-PFIZER INC-2011288869

PATIENT
  Age: 79 Year
  Sex: Female
  Weight: 50 kg

DRUGS (18)
  1. ALUDROX ^WYETH^ [Concomitant]
     Indication: ABDOMINAL PAIN UPPER
     Dosage: 2.4 G, AS NEEDED
     Route: 048
  2. LYRICA [Suspect]
     Indication: SCIATICA
     Dosage: 75 MG, 2X/DAY
     Route: 048
     Dates: start: 20111019, end: 20111115
  3. MECOBALAMIN [Concomitant]
     Indication: LUMBAR SPINAL STENOSIS
     Dosage: 500 MG, 3X/DAY
     Route: 048
  4. PRAVASTATIN [Concomitant]
     Indication: HYPERLIPIDAEMIA
     Dosage: 10 MG, 1X/DAY
  5. SULPIRIDE [Concomitant]
     Indication: NEUROSIS
     Dosage: 50 MG, 1X/DAY
     Route: 048
  6. REBAMIPIDE [Concomitant]
     Indication: GASTRITIS
     Dosage: 100 MG, 3X/DAY
     Route: 048
  7. OMEPRAZOLE [Concomitant]
     Indication: GASTROOESOPHAGEAL REFLUX DISEASE
     Dosage: 20 MG, 1X/DAY
     Route: 048
  8. LEXOTAN [Concomitant]
  9. NEUROTROPIN [Concomitant]
     Indication: OSTEOARTHRITIS
     Dosage: 4 UNK, 2X/DAY
     Route: 048
  10. AMOBANTES [Concomitant]
     Indication: INSOMNIA
     Dosage: 7.5 MG, 1X/DAY
     Route: 048
  11. ITRACONAZOLE [Concomitant]
     Indication: BRONCHOPULMONARY ASPERGILLOSIS
     Dosage: 100 MG, 2X/DAY
     Route: 048
  12. LASIX [Concomitant]
     Indication: CARDIAC FAILURE CONGESTIVE
     Dosage: 40 MG, 2X/DAY
  13. LIMAPROST [Concomitant]
     Indication: LUMBAR SPINAL STENOSIS
     Dosage: 5 UG, 3X/DAY
     Route: 048
  14. MAGNESIUM SULFATE [Concomitant]
     Indication: CONSTIPATION
     Dosage: 250 MG, 1X/DAY
     Route: 048
  15. SENNOSIDE A+B [Concomitant]
     Indication: CONSTIPATION
     Dosage: 24 MG, 1X/DAY
     Route: 048
  16. GASCON [Concomitant]
     Indication: GASTRITIS ATROPHIC
     Dosage: 80 MG, 3X/DAY
     Route: 048
  17. ANCOTIL [Concomitant]
     Indication: BRONCHOPULMONARY ASPERGILLOSIS
     Dosage: 2000 MG, 3X/DAY
     Route: 048
  18. MUCOSOLATE [Concomitant]
     Indication: PULMONARY TUBERCULOSIS
     Dosage: 15 MG, 3X/DAY
     Route: 048

REACTIONS (9)
  - COGNITIVE DISORDER [None]
  - FEELING ABNORMAL [None]
  - SOMNOLENCE [None]
  - TREMOR [None]
  - PAIN [None]
  - DIZZINESS [None]
  - MEMORY IMPAIRMENT [None]
  - DYSPNOEA [None]
  - PANIC REACTION [None]
